FAERS Safety Report 7842642-7 (Version None)
Quarter: 2011Q4

REPORT INFORMATION
  Report Type: 
  Country: None (occurrence: None)
  Receive Date: 20111025
  Receipt Date: 20111019
  Transmission Date: 20120403
  Serious: Yes (Other)
  Sender: FDA-Public Use
  Company Number: AU-AMGEN-AUSSP2011039902

PATIENT
  Age: 45 Year
  Sex: Female

DRUGS (6)
  1. DOXORUBICIN HCL [Concomitant]
  2. PREDNISONE [Concomitant]
  3. NEULASTA [Suspect]
     Indication: CHEMOTHERAPY
  4. RITUXIMAB [Concomitant]
  5. VINCRISTINE [Concomitant]
  6. CYCLOPHOSPHAMIDE [Concomitant]

REACTIONS (1)
  - GENERAL SYMPTOM [None]
